FAERS Safety Report 4494411-6 (Version None)
Quarter: 2004Q4

REPORT INFORMATION
  Report Type: 
  Country: None (occurrence: None)
  Receive Date: 20041102
  Receipt Date: 20041019
  Transmission Date: 20050328
  Serious: Yes (Other)
  Sender: FDA-Public Use
  Company Number: 239933

PATIENT
  Age: 65 Year
  Sex: Male

DRUGS (6)
  1. ACTRAPID (INSULIN HUMAN) SOLUTION FOR INJECTION [Suspect]
     Indication: DIABETES MELLITUS INSULIN-DEPENDENT
     Dosage: IN THE MORNING
  2. MIXTARD HUMAN 70/30 [Suspect]
     Indication: DIABETES MELLITUS INSULIN-DEPENDENT
     Dosage: IN THE EVENING
  3. METFORMIN [Concomitant]
  4. PLAVIX [Concomitant]
  5. COVERSYL (PERINDOPRIL) [Concomitant]
  6. NORVASC [Concomitant]

REACTIONS (1)
  - MYOCARDIAL INFARCTION [None]
